FAERS Safety Report 22773337 (Version 2)
Quarter: 2023Q4

REPORT INFORMATION
  Report Type: Spontaneous
  Country: HK (occurrence: HK)
  Receive Date: 20230801
  Receipt Date: 20231006
  Transmission Date: 20240110
  Serious: Yes (Hospitalization)
  Sender: FDA-Public Use
  Company Number: HK-BAYER-2023A107965

PATIENT
  Age: 71 Year
  Sex: Male

DRUGS (1)
  1. ULTRAVIST [Suspect]
     Active Substance: IOPROMIDE
     Indication: Computerised tomogram heart
     Dosage: 70-80ML ONCE
     Dates: start: 20230612, end: 20230612

REACTIONS (6)
  - Nausea [None]
  - Loss of consciousness [None]
  - Slow response to stimuli [None]
  - Dyspnoea [None]
  - Blood pressure decreased [None]
  - Oxygen saturation decreased [None]

NARRATIVE: CASE EVENT DATE: 20230612
